FAERS Safety Report 24110182 (Version 1)
Quarter: 2024Q3

REPORT INFORMATION
  Report Type: Spontaneous
  Country: US (occurrence: None)
  Receive Date: 20240718
  Receipt Date: 20240718
  Transmission Date: 20241017
  Serious: Yes (Death)
  Sender: Public
  Company Number: None

PATIENT
  Age: 52 Year
  Sex: Male

DRUGS (1)
  1. CINACALCET HYDROCHLORIDE [Suspect]
     Active Substance: CINACALCET HYDROCHLORIDE
     Indication: End stage renal disease
     Dosage: FREQUENCY : DAILY;?
     Route: 048
     Dates: start: 20240529, end: 20240606

REACTIONS (1)
  - Death [None]

NARRATIVE: CASE EVENT DATE: 20240606
